FAERS Safety Report 24397000 (Version 1)
Quarter: 2024Q4

REPORT INFORMATION
  Report Type: Spontaneous
  Country: US (occurrence: None)
  Receive Date: 20241003
  Receipt Date: 20241003
  Transmission Date: 20250114
  Serious: Yes (Hospitalization)
  Sender: Public
  Company Number: None

PATIENT
  Age: 77 Year
  Sex: Female

DRUGS (1)
  1. TYMLOS [Suspect]
     Active Substance: ABALOPARATIDE
     Indication: Osteoporosis
     Dosage: FREQUENCY : DAILY;?
     Route: 058
     Dates: start: 20230901, end: 20241003

REACTIONS (7)
  - Nausea [None]
  - Tachycardia [None]
  - Headache [None]
  - Dizziness [None]
  - Dyspnoea [None]
  - Pulmonary oedema [None]
  - Seizure [None]

NARRATIVE: CASE EVENT DATE: 20240930
